FAERS Safety Report 5927664-5 (Version None)
Quarter: 2008Q4

REPORT INFORMATION
  Report Type: 
  Country: None (occurrence: None)
  Receive Date: 20081023
  Receipt Date: 20081016
  Transmission Date: 20090506
  Serious: Yes (Other)
  Sender: FDA-Public Use
  Company Number: US-AVENTIS-200817034US

PATIENT
  Age: 73 Year
  Sex: Male

DRUGS (9)
  1. LOVENOX [Suspect]
     Route: 058
     Dates: start: 20080929, end: 20081001
  2. HYDROCODONE BITARTRATE [Concomitant]
     Dosage: DOSE: UNK
  3. APAP TAB [Concomitant]
     Dosage: DOSE: 7.5/500
  4. IRON SUPPLEMENT [Concomitant]
     Dosage: DOSE: UNK
  5. LIPITOR [Concomitant]
  6. LOTREL [Concomitant]
     Dosage: DOSE: 10-40
  7. PRILOSEC [Concomitant]
  8. NAPROSYN [Concomitant]
     Dosage: DOSE: UNK
  9. SENOKOT                            /00142201/ [Concomitant]
     Dosage: DOSE: UNK

REACTIONS (2)
  - HYPOTENSION [None]
  - PLATELET COUNT INCREASED [None]
